FAERS Safety Report 24908401 (Version 3)
Quarter: 2025Q3

REPORT INFORMATION
  Report Type: Spontaneous
  Country: JP (occurrence: JP)
  Receive Date: 20250131
  Receipt Date: 20250802
  Transmission Date: 20251021
  Serious: Yes (Death, Other)
  Sender: ALEXION PHARMACEUTICALS
  Company Number: JP-ASTRAZENECA-240096382_012620_P_1

PATIENT
  Age: 69 Year
  Sex: Female
  Weight: 44 kg

DRUGS (24)
  1. TRUQAP [Suspect]
     Active Substance: CAPIVASERTIB
     Indication: Breast cancer
     Dosage: 4-DAYS-ON, 3-DAYS-OFF SCHEDULE
     Dates: start: 20240807, end: 20240828
  2. FASLODEX [Suspect]
     Active Substance: FULVESTRANT
     Indication: Breast cancer
     Dates: start: 20230329, end: 20230531
  3. FASLODEX [Suspect]
     Active Substance: FULVESTRANT
  4. FASLODEX [Suspect]
     Active Substance: FULVESTRANT
     Dosage: DOSE UNKNOWN
     Dates: start: 20240807
  5. DENOSUMAB [Concomitant]
     Active Substance: DENOSUMAB
     Indication: Breast cancer
     Dates: start: 20240112, end: 20240904
  6. LEVOTHYROXINE [Concomitant]
     Active Substance: LEVOTHYROXINE
     Indication: Papillary thyroid cancer
     Dates: start: 20200108
  7. ALFACALCIDOL [Concomitant]
     Active Substance: ALFACALCIDOL
     Indication: Hypoparathyroidism
  8. CALCIUM [Concomitant]
     Active Substance: CALCIUM
     Indication: Hypoparathyroidism
  9. ABEMACICLIB [Concomitant]
     Active Substance: ABEMACICLIB
     Route: 065
  10. ABEMACICLIB [Concomitant]
     Active Substance: ABEMACICLIB
     Route: 065
  11. IBRANCE [Concomitant]
     Active Substance: PALBOCICLIB
     Route: 065
  12. EXEMESTANE [Concomitant]
     Active Substance: EXEMESTANE
     Route: 065
  13. DENOSUMAB [Concomitant]
     Active Substance: DENOSUMAB
     Route: 065
  14. LOXOPROFEN SODIUM [Concomitant]
     Active Substance: LOXOPROFEN SODIUM
     Indication: Arthralgia
  15. PREDNISOLONE [Concomitant]
     Active Substance: PREDNISOLONE
     Route: 065
  16. PREDNISOLONE [Concomitant]
     Active Substance: PREDNISOLONE
     Route: 065
  17. PREDNISOLONE [Concomitant]
     Active Substance: PREDNISOLONE
     Route: 065
  18. PREDNISOLONE [Concomitant]
     Active Substance: PREDNISOLONE
     Route: 065
  19. PREDNISOLONE [Concomitant]
     Active Substance: PREDNISOLONE
     Route: 065
  20. PREDNISOLONE [Concomitant]
     Active Substance: PREDNISOLONE
     Route: 065
  21. PREDNISOLONE [Concomitant]
     Active Substance: PREDNISOLONE
     Route: 065
  22. PREDNISOLONE [Concomitant]
     Active Substance: PREDNISOLONE
     Route: 065
  23. PREDNISOLONE [Concomitant]
     Active Substance: PREDNISOLONE
     Route: 065
  24. VONOPRAZAN FUMARATE [Concomitant]
     Active Substance: VONOPRAZAN FUMARATE
     Route: 065

REACTIONS (2)
  - Death [Fatal]
  - Malaise [Recovered/Resolved]

NARRATIVE: CASE EVENT DATE: 20240828
